FAERS Safety Report 9272430 (Version 1)
Quarter: 2013Q2

REPORT INFORMATION
  Report Type: Spontaneous
  Country: US (occurrence: US)
  Receive Date: 20130506
  Receipt Date: 20130506
  Transmission Date: 20140414
  Serious: No
  Sender: FDA-Public Use
  Company Number: US-009507513-1305USA002182

PATIENT
  Age: 56 Year
  Sex: Female

DRUGS (1)
  1. PREGNYL [Suspect]
     Indication: WEIGHT CONTROL

REACTIONS (2)
  - Venous thrombosis [Unknown]
  - Off label use [Unknown]
